FAERS Safety Report 23638071 (Version 1)
Quarter: 2024Q1

REPORT INFORMATION
  Report Type: Spontaneous
  Country: US (occurrence: None)
  Receive Date: 20240315
  Receipt Date: 20240315
  Transmission Date: 20240409
  Serious: No
  Sender: FDA-Public Use
  Company Number: 2024A055282

PATIENT
  Sex: Female

DRUGS (1)
  1. SYMBICORT [Suspect]
     Active Substance: BUDESONIDE\FORMOTEROL FUMARATE DIHYDRATE
     Dosage: 160/4.5MCG, 120 INHALATIONS UNKNOWN
     Route: 055

REACTIONS (3)
  - Oropharyngeal discomfort [Unknown]
  - Hypersensitivity [Unknown]
  - Sinus disorder [Unknown]
